FAERS Safety Report 20567683 (Version 1)
Quarter: 2022Q1

REPORT INFORMATION
  Report Type: Spontaneous
  Country: GB (occurrence: GB)
  Receive Date: 20220308
  Receipt Date: 20220308
  Transmission Date: 20220423
  Serious: Yes (Hospitalization)
  Sender: FDA-Public Use
  Company Number: GB-ABBVIE-22K-167-4305493-00

PATIENT
  Age: 67 Year
  Sex: Male

DRUGS (1)
  1. EPILIM [Suspect]
     Active Substance: VALPROATE SODIUM
     Indication: Product used for unknown indication
     Dosage: SUPPOSED TO TAKE THEM ONE IN THE MORNING AND TWO BEFORE BED (AT NIGHT TIME).
     Route: 065

REACTIONS (3)
  - Wrong technique in product usage process [Unknown]
  - Hospitalisation [Unknown]
  - Confusional state [Unknown]

NARRATIVE: CASE EVENT DATE: 20191025
